FAERS Safety Report 9961669 (Version 1)
Quarter: 2014Q1

REPORT INFORMATION
  Report Type: Report from Study
  Country: US (occurrence: US)
  Receive Date: 20140305
  Receipt Date: 20140305
  Transmission Date: 20141002
  Serious: Yes (Other)
  Sender: FDA-Public Use
  Company Number: US-ABBVIE-13P-163-1112838-00

PATIENT
  Age: 58 Year
  Sex: Male
  Weight: 96.25 kg

DRUGS (2)
  1. HUMIRA [Suspect]
     Indication: PRODUCT USED FOR UNKNOWN INDICATION
     Dates: start: 201303, end: 20130516
  2. PENTASA [Concomitant]
     Indication: CROHN^S DISEASE

REACTIONS (1)
  - Ileectomy [Unknown]
